FAERS Safety Report 6946890-X (Version None)
Quarter: 2010Q3

REPORT INFORMATION
  Report Type: 
  Country: None (occurrence: None)
  Receive Date: 20100827
  Receipt Date: 20090818
  Transmission Date: 20110219
  Serious: No
  Sender: FDA-Public Use
  Company Number: US-ABBOTT-09P-163-0593180-00

PATIENT
  Sex: Female
  Weight: 50.848 kg

DRUGS (5)
  1. NIASPAN [Suspect]
     Indication: LIPOPROTEIN (A) INCREASED
     Route: 048
     Dates: start: 19980101, end: 20050101
  2. NIASPAN [Suspect]
     Route: 048
     Dates: start: 20070101, end: 20080101
  3. VITAMIN B-12 [Concomitant]
     Indication: VITAMIN SUPPLEMENTATION
  4. B 10 [Concomitant]
     Indication: VITAMIN SUPPLEMENTATION
  5. OTC NIACIN [Concomitant]
     Indication: LIPOPROTEIN (A) INCREASED
     Route: 048

REACTIONS (2)
  - ALOPECIA [None]
  - SERUM FERRITIN DECREASED [None]
